FAERS Safety Report 6028893-5 (Version None)
Quarter: 2009Q1

REPORT INFORMATION
  Report Type: 
  Country: None (occurrence: None)
  Receive Date: 20090105
  Receipt Date: 20090105
  Transmission Date: 20090719
  Serious: Yes (Hospitalization)
  Sender: FDA-Public Use
  Company Number: None

PATIENT
  Sex: Male
  Weight: 11.7 kg

DRUGS (4)
  1. CYTARABINE [Suspect]
     Dosage: 15 MG
     Dates: end: 20081209
  2. HYDROCORTISONE [Suspect]
     Dosage: 7.5 MG
     Dates: end: 20081209
  3. LEUCOVORIN CALCIUM [Suspect]
     Dosage: 22.5 MG
  4. METHOTREXATE [Suspect]
     Dosage: 3967.5 MG
     Dates: end: 20081216

REACTIONS (6)
  - CULTURE URINE POSITIVE [None]
  - ENTEROCOCCAL INFECTION [None]
  - NEUTROPENIA [None]
  - PLATELET COUNT DECREASED [None]
  - PYREXIA [None]
  - STAPHYLOCOCCAL INFECTION [None]
